FAERS Safety Report 5797879-8 (Version None)
Quarter: 2008Q2

REPORT INFORMATION
  Report Type: 
  Country: None (occurrence: None)
  Receive Date: 20080630
  Receipt Date: 20080612
  Transmission Date: 20081010
  Serious: Yes (Hospitalization)
  Sender: FDA-Public Use
  Company Number: 2008001238

PATIENT
  Age: 53 Year
  Sex: Male

DRUGS (3)
  1. TARCEVA [Suspect]
     Indication: LUNG SQUAMOUS CELL CARCINOMA STAGE UNSPECIFIED
     Dosage: (150 MG, QD), ORAL
     Route: 048
     Dates: start: 20080324
  2. FENTANYL [Concomitant]
  3. DOMPERIDONE (DOMPERIDONE) [Concomitant]

REACTIONS (7)
  - HALLUCINATION, AUDITORY [None]
  - INSOMNIA [None]
  - LUNG ABSCESS [None]
  - PSYCHOMOTOR HYPERACTIVITY [None]
  - PSYCHOTIC DISORDER [None]
  - PULMONARY CONGESTION [None]
  - TREATMENT FAILURE [None]
